FAERS Safety Report 23560047 (Version 1)
Quarter: 2024Q1

REPORT INFORMATION
  Report Type: Report from Study
  Country: IT (occurrence: IT)
  Receive Date: 20240223
  Receipt Date: 20240223
  Transmission Date: 20240410
  Serious: Yes (Hospitalization)
  Sender: FDA-Public Use
  Company Number: None

PATIENT
  Age: 88 Year
  Sex: Male

DRUGS (4)
  1. CLOPIDOGREL [Suspect]
     Active Substance: CLOPIDOGREL BISULFATE
     Indication: Myocardial ischaemia
     Dosage: ADMINISTRATION FREQUENCY: DAILY
     Route: 048
     Dates: start: 20220107, end: 20220903
  2. COUMADIN [Suspect]
     Active Substance: WARFARIN SODIUM
     Indication: Myocardial ischaemia
     Dosage: DOSAGE: 1, UNIT OF MEASUREMENT: DOSAGE UNIT, ADMINISTRATION FREQUENCY: DAILY
     Route: 048
     Dates: start: 20220107, end: 20220903
  3. SERTRALINE [Concomitant]
     Active Substance: SERTRALINE HYDROCHLORIDE
     Indication: Product used for unknown indication
     Route: 065
  4. LANSOPRAZOLE [Concomitant]
     Active Substance: LANSOPRAZOLE
     Indication: Product used for unknown indication
     Route: 065

REACTIONS (2)
  - Melaena [Recovered/Resolved]
  - Blood loss anaemia [Recovered/Resolved]

NARRATIVE: CASE EVENT DATE: 20220904
